FAERS Safety Report 7630786-4 (Version None)
Quarter: 2011Q3

REPORT INFORMATION
  Report Type: 
  Country: None (occurrence: None)
  Receive Date: 20110722
  Receipt Date: 20110713
  Transmission Date: 20111222
  Serious: Yes (Disabling, Other)
  Sender: FDA-Public Use
  Company Number: US-ASTRAZENECA-2010SE24138

PATIENT
  Age: 46 Year
  Sex: Male

DRUGS (2)
  1. NEXIUM [Suspect]
     Route: 048
  2. SEROQUEL [Suspect]
     Dosage: UP TO 7 TABLETS DAILY
     Route: 048

REACTIONS (7)
  - DRUG DOSE OMISSION [None]
  - ACCIDENT AT WORK [None]
  - DISABILITY [None]
  - VOMITING [None]
  - ABDOMINAL PAIN UPPER [None]
  - DECREASED APPETITE [None]
  - BRAIN INJURY [None]
